FAERS Safety Report 26201870 (Version 1)
Quarter: 2025Q4

REPORT INFORMATION
  Report Type: Spontaneous
  Country: CA (occurrence: CA)
  Receive Date: 20251226
  Receipt Date: 20251226
  Transmission Date: 20260117
  Serious: Yes (Life-Threatening, Hospitalization, Disabling, Other)
  Sender: BRISTOL-MYERS SQUIBB COMPANY
  Company Number: CA-BRISTOL-MYERS SQUIBB COMPANY-2025-168229

PATIENT
  Age: 43 Year
  Sex: Female
  Weight: 97 kg

DRUGS (280)
  1. ORENCIA [Suspect]
     Active Substance: ABATACEPT
     Indication: Rheumatoid arthritis
     Route: 042
  2. ORENCIA [Suspect]
     Active Substance: ABATACEPT
     Route: 042
  3. ORENCIA [Suspect]
     Active Substance: ABATACEPT
     Dosage: ROUTE OF ADMINISTRATION: POWDER AND SOLVENT FOR SOLUTION FOR INJECTION
     Route: 042
  4. ORENCIA [Suspect]
     Active Substance: ABATACEPT
     Dosage: ROUTE OF ADMINISTRATION: POWDER AND SOLVENT FOR SOLUTION FOR INJECTION
     Route: 042
  5. ORENCIA [Suspect]
     Active Substance: ABATACEPT
     Dosage: ROUTE OF ADMINISTRATION: POWDER AND SOLVENT FOR SOLUTION FOR INJECTION
     Route: 058
  6. ORENCIA [Suspect]
     Active Substance: ABATACEPT
     Indication: Rheumatoid arthritis
     Route: 058
  7. ORENCIA [Suspect]
     Active Substance: ABATACEPT
     Indication: Rheumatoid arthritis
  8. ACETAMINOPHEN [Concomitant]
     Active Substance: ACETAMINOPHEN
     Indication: Product used for unknown indication
  9. ACETAMINOPHEN [Concomitant]
     Active Substance: ACETAMINOPHEN
  10. ACTEMRA [Concomitant]
     Active Substance: TOCILIZUMAB
     Indication: Rheumatoid arthritis
  11. ACTEMRA [Concomitant]
     Active Substance: TOCILIZUMAB
     Route: 042
  12. ACTEMRA [Concomitant]
     Active Substance: TOCILIZUMAB
  13. ACTEMRA [Concomitant]
     Active Substance: TOCILIZUMAB
     Route: 058
  14. ALENDRONATE SODIUM [Concomitant]
     Active Substance: ALENDRONATE SODIUM
     Indication: Rheumatoid arthritis
     Route: 048
  15. ALENDRONIC ACID [Concomitant]
     Active Substance: ALENDRONIC ACID
     Indication: Product used for unknown indication
  16. PANTOPRAZOLE SODIUM ANHYDROUS [Concomitant]
     Active Substance: PANTOPRAZOLE SODIUM ANHYDROUS
     Indication: Product used for unknown indication
  17. PREDNISONE [Concomitant]
     Active Substance: PREDNISONE
     Indication: Rheumatoid arthritis
  18. PREDNISONE [Concomitant]
     Active Substance: PREDNISONE
     Indication: Condition aggravated
  19. PREDNISONE [Concomitant]
     Active Substance: PREDNISONE
  20. PREDNISONE [Concomitant]
     Active Substance: PREDNISONE
  21. PREDNISONE [Concomitant]
     Active Substance: PREDNISONE
     Route: 048
  22. PREDNISONE [Concomitant]
     Active Substance: PREDNISONE
  23. PREDNISONE [Concomitant]
     Active Substance: PREDNISONE
  24. PREDNISONE [Concomitant]
     Active Substance: PREDNISONE
     Route: 048
  25. ARAVA [Concomitant]
     Active Substance: LEFLUNOMIDE
     Indication: Rheumatoid arthritis
     Route: 048
  26. ARAVA [Concomitant]
     Active Substance: LEFLUNOMIDE
     Indication: Condition aggravated
     Route: 048
  27. ARAVA [Concomitant]
     Active Substance: LEFLUNOMIDE
     Route: 048
  28. ARAVA [Concomitant]
     Active Substance: LEFLUNOMIDE
  29. ARAVA [Concomitant]
     Active Substance: LEFLUNOMIDE
     Route: 048
  30. ARAVA [Concomitant]
     Active Substance: LEFLUNOMIDE
  31. ATIVAN [Concomitant]
     Active Substance: LORAZEPAM
     Indication: Anxiety
  32. CAFFEINE [Concomitant]
     Active Substance: CAFFEINE
     Indication: Product used for unknown indication
  33. CALCIUM CARBONATE [Concomitant]
     Active Substance: CALCIUM CARBONATE
     Indication: Product used for unknown indication
  34. CALCIUM CHLORIDE [Concomitant]
     Active Substance: CALCIUM CHLORIDE
     Indication: Product used for unknown indication
  35. CALCIUM GLUBIONATE [Concomitant]
     Active Substance: CALCIUM GLUBIONATE
     Indication: Product used for unknown indication
  36. CALCIUM GLUCONATE [Concomitant]
     Active Substance: CALCIUM GLUCONATE
     Indication: Product used for unknown indication
  37. CALCIUM LACTATE [Concomitant]
     Active Substance: CALCIUM LACTATE
     Indication: Product used for unknown indication
  38. CELEBREX [Concomitant]
     Active Substance: CELECOXIB
     Indication: Rheumatoid arthritis
  39. CELEBREX [Concomitant]
     Active Substance: CELECOXIB
     Indication: Arthritis
     Route: 048
  40. CELEBREX [Concomitant]
     Active Substance: CELECOXIB
     Route: 048
  41. CELEBREX [Concomitant]
     Active Substance: CELECOXIB
  42. CERTOLIZUMAB PEGOL [Concomitant]
     Active Substance: CERTOLIZUMAB PEGOL
     Indication: Product used for unknown indication
     Route: 058
  43. CETIRIZINE [Concomitant]
     Active Substance: CETIRIZINE HYDROCHLORIDE
     Indication: Rheumatoid arthritis
  44. CETIRIZINE HYDROCHLORIDE [Concomitant]
     Active Substance: CETIRIZINE HYDROCHLORIDE
     Indication: Rheumatoid arthritis
  45. CETIRIZINE HYDROCHLORIDE [Concomitant]
     Active Substance: CETIRIZINE HYDROCHLORIDE
  46. CETIRIZINE HYDROCHLORIDE [Concomitant]
     Active Substance: CETIRIZINE HYDROCHLORIDE
  47. CETIRIZINE HYDROCHLORIDE [Concomitant]
     Active Substance: CETIRIZINE HYDROCHLORIDE
  48. CETIRIZINE HYDROCHLORIDE [Concomitant]
     Active Substance: CETIRIZINE HYDROCHLORIDE
  49. CHOLECALCIFEROL [Concomitant]
     Active Substance: CHOLECALCIFEROL
     Indication: Product used for unknown indication
  50. CIMZIA [Concomitant]
     Active Substance: CERTOLIZUMAB PEGOL
     Indication: Rheumatoid arthritis
     Route: 058
  51. CIMZIA [Concomitant]
     Active Substance: CERTOLIZUMAB PEGOL
  52. CIMZIA [Concomitant]
     Active Substance: CERTOLIZUMAB PEGOL
  53. CIMZIA [Concomitant]
     Active Substance: CERTOLIZUMAB PEGOL
     Route: 058
  54. CIMZIA [Concomitant]
     Active Substance: CERTOLIZUMAB PEGOL
  55. CIMZIA [Concomitant]
     Active Substance: CERTOLIZUMAB PEGOL
  56. CORTISONE ACETATE [Concomitant]
     Active Substance: CORTISONE ACETATE
     Indication: Rheumatoid arthritis
  57. CORTISONE ACETATE [Concomitant]
     Active Substance: CORTISONE ACETATE
  58. CORTISONE ACETATE [Concomitant]
     Active Substance: CORTISONE ACETATE
  59. CORTISONE ACETATE [Concomitant]
     Active Substance: CORTISONE ACETATE
  60. COSENTYX [Concomitant]
     Active Substance: SECUKINUMAB
     Indication: Psoriatic arthropathy
     Route: 042
  61. DESOXIMETASONE [Concomitant]
     Active Substance: DESOXIMETASONE
     Indication: Rheumatoid arthritis
  62. DESOXIMETASONE [Concomitant]
     Active Substance: DESOXIMETASONE
     Route: 003
  63. DESOXIMETASONE [Concomitant]
     Active Substance: DESOXIMETASONE
  64. DESOXIMETASONE [Concomitant]
     Active Substance: DESOXIMETASONE
     Route: 048
  65. DESOXIMETASONE [Concomitant]
     Active Substance: DESOXIMETASONE
     Route: 048
  66. DESOXIMETASONE [Concomitant]
     Active Substance: DESOXIMETASONE
  67. DESOXIMETASONE [Concomitant]
     Active Substance: DESOXIMETASONE
     Route: 048
  68. DESOXIMETASONE [Concomitant]
     Active Substance: DESOXIMETASONE
     Route: 003
  69. DESOXIMETASONE [Concomitant]
     Active Substance: DESOXIMETASONE
  70. DESOXIMETASONE [Concomitant]
     Active Substance: DESOXIMETASONE
     Route: 048
  71. DICLOFENAC DIETHYLAMINE [Concomitant]
     Active Substance: DICLOFENAC DIETHYLAMINE
     Indication: Product used for unknown indication
  72. ELBASVIR [Concomitant]
     Active Substance: ELBASVIR
     Indication: Product used for unknown indication
  73. ENBREL [Concomitant]
     Active Substance: ETANERCEPT
     Indication: Rheumatoid arthritis
     Route: 058
  74. ENBREL [Concomitant]
     Active Substance: ETANERCEPT
  75. ENBREL [Concomitant]
     Active Substance: ETANERCEPT
     Route: 058
  76. ENBREL [Concomitant]
     Active Substance: ETANERCEPT
     Route: 058
  77. ERELZI [Concomitant]
     Active Substance: ETANERCEPT-SZZS
     Indication: Rheumatoid arthritis
  78. ERELZI [Concomitant]
     Active Substance: ETANERCEPT-SZZS
  79. ERELZI [Concomitant]
     Active Substance: ETANERCEPT-SZZS
     Route: 058
  80. ERELZI [Concomitant]
     Active Substance: ETANERCEPT-SZZS
     Route: 058
  81. ERELZI [Concomitant]
     Active Substance: ETANERCEPT-SZZS
     Route: 058
  82. ERGOCALCIFEROL [Concomitant]
     Active Substance: ERGOCALCIFEROL
     Indication: Product used for unknown indication
  83. FLUMETHASONE PIVALATE [Concomitant]
     Active Substance: FLUMETHASONE PIVALATE
     Indication: Rheumatoid arthritis
     Route: 058
  84. FOLIC ACID [Concomitant]
     Active Substance: FOLIC ACID
     Indication: Rheumatoid arthritis
     Route: 048
  85. FOLIC ACID [Concomitant]
     Active Substance: FOLIC ACID
  86. FOLIC ACID [Concomitant]
     Active Substance: FOLIC ACID
  87. FOLIC ACID [Concomitant]
     Active Substance: FOLIC ACID
  88. FOLIC ACID [Concomitant]
     Active Substance: FOLIC ACID
     Route: 058
  89. FOLIC ACID [Concomitant]
     Active Substance: FOLIC ACID
  90. FOLIC ACID [Concomitant]
     Active Substance: FOLIC ACID
     Route: 048
  91. FOLIC ACID [Concomitant]
     Active Substance: FOLIC ACID
     Route: 048
  92. FOLIC ACID [Concomitant]
     Active Substance: FOLIC ACID
  93. FOLIC ACID [Concomitant]
     Active Substance: FOLIC ACID
  94. FOLIC ACID [Concomitant]
     Active Substance: FOLIC ACID
  95. FOLIC ACID [Concomitant]
     Active Substance: FOLIC ACID
     Route: 048
  96. FOLIC ACID [Concomitant]
     Active Substance: FOLIC ACID
     Route: 048
  97. FOSAMAX [Concomitant]
     Active Substance: ALENDRONATE SODIUM
     Indication: Rheumatoid arthritis
     Route: 048
  98. FOSAMAX [Concomitant]
     Active Substance: ALENDRONATE SODIUM
  99. GLUCOSAMINE [Concomitant]
     Active Substance: GLUCOSAMINE
     Indication: Product used for unknown indication
  100. GOLIMUMAB [Concomitant]
     Active Substance: GOLIMUMAB
     Indication: Rheumatoid arthritis
  101. HUMIRA [Concomitant]
     Active Substance: ADALIMUMAB
     Indication: Rheumatoid arthritis
     Route: 058
  102. HUMIRA [Concomitant]
     Active Substance: ADALIMUMAB
  103. HUMIRA [Concomitant]
     Active Substance: ADALIMUMAB
     Route: 058
  104. HUMIRA [Concomitant]
     Active Substance: ADALIMUMAB
     Route: 058
  105. HUMIRA [Concomitant]
     Active Substance: ADALIMUMAB
     Route: 058
  106. HUMIRA [Concomitant]
     Active Substance: ADALIMUMAB
     Route: 058
  107. HUMIRA [Concomitant]
     Active Substance: ADALIMUMAB
     Route: 058
  108. HUMIRA [Concomitant]
     Active Substance: ADALIMUMAB
  109. HUMIRA [Concomitant]
     Active Substance: ADALIMUMAB
  110. HYDROCORTISONE ACETATE [Concomitant]
     Active Substance: HYDROCORTISONE ACETATE
     Indication: Rheumatoid arthritis
  111. HYDROXYCHLOROQUINE [Concomitant]
     Active Substance: HYDROXYCHLOROQUINE
     Indication: Rheumatoid arthritis
     Route: 048
  112. HYDROXYCHLOROQUINE [Concomitant]
     Active Substance: HYDROXYCHLOROQUINE
     Route: 048
  113. HYDROXYCHLOROQUINE [Concomitant]
     Active Substance: HYDROXYCHLOROQUINE
     Route: 048
  114. HYDROXYCHLOROQUINE [Concomitant]
     Active Substance: HYDROXYCHLOROQUINE
     Route: 048
  115. HYDROXYCHLOROQUINE [Concomitant]
     Active Substance: HYDROXYCHLOROQUINE
     Route: 048
  116. HYDROXYCHLOROQUINE [Concomitant]
     Active Substance: HYDROXYCHLOROQUINE
  117. HYDROXYCHLOROQUINE [Concomitant]
     Active Substance: HYDROXYCHLOROQUINE
     Route: 048
  118. HYDROXYCHLOROQUINE [Concomitant]
     Active Substance: HYDROXYCHLOROQUINE
     Route: 048
  119. HYDROXYCHLOROQUINE [Concomitant]
     Active Substance: HYDROXYCHLOROQUINE
     Route: 048
  120. HYDROXYCHLOROQUINE [Concomitant]
     Active Substance: HYDROXYCHLOROQUINE
     Route: 048
  121. HYDROXYCHLOROQUINE [Concomitant]
     Active Substance: HYDROXYCHLOROQUINE
     Route: 048
  122. HYDROXYCHLOROQUINE [Concomitant]
     Active Substance: HYDROXYCHLOROQUINE
  123. HYDROXYCHLOROQUINE SULFATE [Concomitant]
     Active Substance: HYDROXYCHLOROQUINE SULFATE
     Indication: Rheumatoid arthritis
     Route: 066
  124. HYDROXYCHLOROQUINE SULFATE [Concomitant]
     Active Substance: HYDROXYCHLOROQUINE SULFATE
     Route: 048
  125. HYDROXYCHLOROQUINE SULFATE [Concomitant]
     Active Substance: HYDROXYCHLOROQUINE SULFATE
     Route: 048
  126. HYDROXYCHLOROQUINE SULFATE [Concomitant]
     Active Substance: HYDROXYCHLOROQUINE SULFATE
  127. HYDROXYCHLOROQUINE SULFATE [Concomitant]
     Active Substance: HYDROXYCHLOROQUINE SULFATE
  128. HYDROXYCHLOROQUINE SULFATE [Concomitant]
     Active Substance: HYDROXYCHLOROQUINE SULFATE
     Route: 048
  129. HYDROXYCHLOROQUINE SULFATE [Concomitant]
     Active Substance: HYDROXYCHLOROQUINE SULFATE
  130. HYDROXYCHLOROQUINE SULFATE [Concomitant]
     Active Substance: HYDROXYCHLOROQUINE SULFATE
     Route: 066
  131. HYDROXYCHLOROQUINE SULFATE [Concomitant]
     Active Substance: HYDROXYCHLOROQUINE SULFATE
     Route: 048
  132. HYDROXYCHLOROQUINE SULFATE [Concomitant]
     Active Substance: HYDROXYCHLOROQUINE SULFATE
     Route: 048
  133. HYDROXYCHLOROQUINE SULFATE [Concomitant]
     Active Substance: HYDROXYCHLOROQUINE SULFATE
  134. HYDROXYCHLOROQUINE SULFATE [Concomitant]
     Active Substance: HYDROXYCHLOROQUINE SULFATE
     Route: 048
  135. HYDROXYCHLOROQUINE SULFATE [Concomitant]
     Active Substance: HYDROXYCHLOROQUINE SULFATE
  136. HYDROXYCHLOROQUINE SULFATE [Concomitant]
     Active Substance: HYDROXYCHLOROQUINE SULFATE
  137. HYRIMOZ [Concomitant]
     Active Substance: ADALIMUMAB-ADAZ
     Indication: Rheumatoid arthritis
     Route: 058
  138. HYRIMOZ [Concomitant]
     Active Substance: ADALIMUMAB-ADAZ
     Route: 058
  139. HYRIMOZ [Concomitant]
     Active Substance: ADALIMUMAB-ADAZ
     Route: 058
  140. HYRIMOZ [Concomitant]
     Active Substance: ADALIMUMAB-ADAZ
  141. HYRIMOZ [Concomitant]
     Active Substance: ADALIMUMAB-ADAZ
     Route: 048
  142. IBUPROFEN [Concomitant]
     Active Substance: IBUPROFEN
     Indication: Product used for unknown indication
  143. ISOPROPYL ALCOHOL [Concomitant]
     Active Substance: ISOPROPYL ALCOHOL
     Indication: Product used for unknown indication
  144. ISOPROPYL ALCOHOL [Concomitant]
     Active Substance: ISOPROPYL ALCOHOL
  145. LANSOPRAZOLE [Concomitant]
     Active Substance: LANSOPRAZOLE
     Indication: Product used for unknown indication
     Dosage: DELAYED RELEASE
  146. LISINOPRIL [Concomitant]
     Active Substance: LISINOPRIL
     Indication: Product used for unknown indication
  147. LISINOPRIL [Concomitant]
     Active Substance: LISINOPRIL
  148. LISINOPRIL [Concomitant]
     Active Substance: LISINOPRIL
     Indication: Product used for unknown indication
  149. LORAZEPAM [Concomitant]
     Active Substance: LORAZEPAM
     Indication: Anxiety
  150. MAGNESIUM [Concomitant]
     Active Substance: MAGNESIUM
     Indication: Product used for unknown indication
  151. METHOTREXATE [Concomitant]
     Active Substance: METHOTREXATE
     Indication: Rheumatoid arthritis
  152. METHOTREXATE [Concomitant]
     Active Substance: METHOTREXATE
     Route: 058
  153. METHOTREXATE [Concomitant]
     Active Substance: METHOTREXATE
     Route: 013
  154. METHOTREXATE [Concomitant]
     Active Substance: METHOTREXATE
     Dosage: INJECTION, USP
  155. METHOTREXATE [Concomitant]
     Active Substance: METHOTREXATE
     Dosage: INJECTION, USP
  156. METHOTREXATE [Concomitant]
     Active Substance: METHOTREXATE
     Dosage: INJECTION, USP
     Route: 048
  157. METHOTREXATE [Concomitant]
     Active Substance: METHOTREXATE
     Dosage: INJECTION, USP
  158. METHOTREXATE [Concomitant]
     Active Substance: METHOTREXATE
     Dosage: INJECTION, USP
     Route: 048
  159. METHOTREXATE [Concomitant]
     Active Substance: METHOTREXATE
     Dosage: INJECTION, USP
     Route: 048
  160. METHOTREXATE [Concomitant]
     Active Substance: METHOTREXATE
     Dosage: INJECTION, USP
     Route: 048
  161. METHOTREXATE [Concomitant]
     Active Substance: METHOTREXATE
     Dosage: INJECTION, USP
     Route: 013
  162. METHOTREXATE [Concomitant]
     Active Substance: METHOTREXATE
     Dosage: INJECTION, USP
     Route: 048
  163. METHOTREXATE [Concomitant]
     Active Substance: METHOTREXATE
     Dosage: INJECTION, USP
     Route: 013
  164. METHOTREXATE [Concomitant]
     Active Substance: METHOTREXATE
     Dosage: INJECTION, USP
     Route: 048
  165. METHOTREXATE [Concomitant]
     Active Substance: METHOTREXATE
     Dosage: INJECTION, USP
     Route: 048
  166. METHOTREXATE [Concomitant]
     Active Substance: METHOTREXATE
     Dosage: INJECTION, USP
     Route: 048
  167. METHOTREXATE [Concomitant]
     Active Substance: METHOTREXATE
     Dosage: INJECTION, USP
  168. METHOTREXATE [Concomitant]
     Active Substance: METHOTREXATE
     Dosage: INJECTION, USP
  169. METHOTREXATE [Concomitant]
     Active Substance: METHOTREXATE
     Dosage: INJECTION, USP?SOLUTION INTRA-ARTERIAL
     Route: 048
  170. NAPROXEN [Concomitant]
     Active Substance: NAPROXEN
     Indication: Rheumatoid arthritis
  171. NAPROXEN SODIUM [Concomitant]
     Active Substance: NAPROXEN SODIUM
     Indication: Rheumatoid arthritis
  172. NAPROXEN SODIUM [Concomitant]
     Active Substance: NAPROXEN SODIUM
  173. OXYCODONE HYDROCHLORIDE [Concomitant]
     Active Substance: OXYCODONE HYDROCHLORIDE
     Indication: Product used for unknown indication
  174. PANTOPRAZOLE [Concomitant]
     Active Substance: PANTOPRAZOLE
     Indication: Product used for unknown indication
  175. PHENYLEPHRINE HYDROCHLORIDE [Concomitant]
     Active Substance: PHENYLEPHRINE HYDROCHLORIDE
     Indication: Rheumatoid arthritis
  176. PHTHALYLSULFATHIAZOLE [Concomitant]
     Active Substance: PHTHALYLSULFATHIAZOLE
     Indication: Rheumatoid arthritis
     Route: 042
  177. PHTHALYLSULFATHIAZOLE [Concomitant]
     Active Substance: PHTHALYLSULFATHIAZOLE
     Route: 058
  178. PHTHALYLSULFATHIAZOLE [Concomitant]
     Active Substance: PHTHALYLSULFATHIAZOLE
     Route: 048
  179. PHTHALYLSULFATHIAZOLE [Concomitant]
     Active Substance: PHTHALYLSULFATHIAZOLE
  180. PHTHALYLSULFATHIAZOLE [Concomitant]
     Active Substance: PHTHALYLSULFATHIAZOLE
     Route: 067
  181. PREDNISOLONE [Concomitant]
     Active Substance: PREDNISOLONE
     Indication: Product used for unknown indication
  182. PREDNISONE [Concomitant]
     Active Substance: PREDNISONE
     Indication: Rheumatoid arthritis
  183. PREDNISONE [Concomitant]
     Active Substance: PREDNISONE
     Indication: Condition aggravated
     Route: 048
  184. PREDNISONE [Concomitant]
     Active Substance: PREDNISONE
     Route: 048
  185. PREDNISONE [Concomitant]
     Active Substance: PREDNISONE
     Route: 048
  186. PREDNISONE [Concomitant]
     Active Substance: PREDNISONE
     Route: 048
  187. PREDNISONE [Concomitant]
     Active Substance: PREDNISONE
     Route: 042
  188. PSEUDOEPHEDRINE [Concomitant]
     Active Substance: PSEUDOEPHEDRINE
     Indication: Rheumatoid arthritis
  189. PSEUDOEPHEDRINE HYDROCHLORIDE [Concomitant]
     Active Substance: PSEUDOEPHEDRINE HYDROCHLORIDE
     Indication: Rheumatoid arthritis
  190. PSEUDOEPHEDRINE HYDROCHLORIDE [Concomitant]
     Active Substance: PSEUDOEPHEDRINE HYDROCHLORIDE
  191. PSEUDOEPHEDRINE HYDROCHLORIDE [Concomitant]
     Active Substance: PSEUDOEPHEDRINE HYDROCHLORIDE
  192. QUETIAPINE [Concomitant]
     Active Substance: QUETIAPINE
     Indication: Product used for unknown indication
  193. QUETIAPINE FUMARATE [Concomitant]
     Active Substance: QUETIAPINE FUMARATE
     Indication: Product used for unknown indication
  194. CETIRIZINE HYDROCHLORIDE [Concomitant]
     Active Substance: CETIRIZINE HYDROCHLORIDE
     Indication: Rheumatoid arthritis
  195. CETIRIZINE HYDROCHLORIDE [Concomitant]
     Active Substance: CETIRIZINE HYDROCHLORIDE
  196. CETIRIZINE HYDROCHLORIDE [Concomitant]
     Active Substance: CETIRIZINE HYDROCHLORIDE
  197. RAMIPRIL [Concomitant]
     Active Substance: RAMIPRIL
     Indication: Product used for unknown indication
  198. CETIRIZINE HYDROCHLORIDE\PSEUDOEPHEDRINE HYDROCHLORIDE [Concomitant]
     Active Substance: CETIRIZINE HYDROCHLORIDE\PSEUDOEPHEDRINE HYDROCHLORIDE
     Indication: Rheumatoid arthritis
  199. CETIRIZINE HYDROCHLORIDE\PSEUDOEPHEDRINE HYDROCHLORIDE [Concomitant]
     Active Substance: CETIRIZINE HYDROCHLORIDE\PSEUDOEPHEDRINE HYDROCHLORIDE
  200. CETIRIZINE HYDROCHLORIDE\PSEUDOEPHEDRINE HYDROCHLORIDE [Concomitant]
     Active Substance: CETIRIZINE HYDROCHLORIDE\PSEUDOEPHEDRINE HYDROCHLORIDE
  201. CETIRIZINE HYDROCHLORIDE\PSEUDOEPHEDRINE HYDROCHLORIDE [Concomitant]
     Active Substance: CETIRIZINE HYDROCHLORIDE\PSEUDOEPHEDRINE HYDROCHLORIDE
     Dosage: EXTENDED RELEASE
  202. CETIRIZINE HYDROCHLORIDE\PSEUDOEPHEDRINE HYDROCHLORIDE [Concomitant]
     Active Substance: CETIRIZINE HYDROCHLORIDE\PSEUDOEPHEDRINE HYDROCHLORIDE
  203. CETIRIZINE HYDROCHLORIDE\PSEUDOEPHEDRINE HYDROCHLORIDE [Concomitant]
     Active Substance: CETIRIZINE HYDROCHLORIDE\PSEUDOEPHEDRINE HYDROCHLORIDE
  204. CETIRIZINE HYDROCHLORIDE\PSEUDOEPHEDRINE HYDROCHLORIDE [Concomitant]
     Active Substance: CETIRIZINE HYDROCHLORIDE\PSEUDOEPHEDRINE HYDROCHLORIDE
  205. CETIRIZINE HYDROCHLORIDE\PSEUDOEPHEDRINE HYDROCHLORIDE [Concomitant]
     Active Substance: CETIRIZINE HYDROCHLORIDE\PSEUDOEPHEDRINE HYDROCHLORIDE
  206. CETIRIZINE HYDROCHLORIDE\PSEUDOEPHEDRINE HYDROCHLORIDE [Concomitant]
     Active Substance: CETIRIZINE HYDROCHLORIDE\PSEUDOEPHEDRINE HYDROCHLORIDE
  207. REMICADE [Concomitant]
     Active Substance: INFLIXIMAB
     Indication: Rheumatoid arthritis
  208. REMICADE [Concomitant]
     Active Substance: INFLIXIMAB
     Route: 042
  209. REMICADE [Concomitant]
     Active Substance: INFLIXIMAB
     Dosage: POWDER FOR SOLUTION INTRAVENOUS
     Route: 042
  210. REMICADE [Concomitant]
     Active Substance: INFLIXIMAB
     Route: 042
  211. REMICADE [Concomitant]
     Active Substance: INFLIXIMAB
     Route: 042
  212. REMICADE [Concomitant]
     Active Substance: INFLIXIMAB
  213. REMICADE [Concomitant]
     Active Substance: INFLIXIMAB
     Route: 042
  214. RISEDRONATE SODIUM [Concomitant]
     Active Substance: RISEDRONATE SODIUM
     Indication: Product used for unknown indication
  215. RISEDRONATE SODIUM [Concomitant]
     Active Substance: RISEDRONATE SODIUM
  216. RITUXIMAB [Concomitant]
     Active Substance: RITUXIMAB
     Indication: Rheumatoid arthritis
     Route: 042
  217. RITUXIMAB [Concomitant]
     Active Substance: RITUXIMAB
     Route: 041
  218. RITUXIMAB [Concomitant]
     Active Substance: RITUXIMAB
     Route: 042
  219. RITUXIMAB [Concomitant]
     Active Substance: RITUXIMAB
     Route: 042
  220. RITUXIMAB [Concomitant]
     Active Substance: RITUXIMAB
  221. SULFASALAZINE [Concomitant]
     Active Substance: SULFASALAZINE
     Indication: Product used for unknown indication
  222. FISH OIL [Concomitant]
     Active Substance: FISH OIL
     Indication: Product used for unknown indication
  223. HYDROCORTISONE [Concomitant]
     Active Substance: HYDROCORTISONE
     Indication: Rheumatoid arthritis
  224. HYDROCORTISONE [Concomitant]
     Active Substance: HYDROCORTISONE
     Route: 058
  225. HYDROCORTISONE [Concomitant]
     Active Substance: HYDROCORTISONE
     Route: 003
  226. HYDROCORTISONE [Concomitant]
     Active Substance: HYDROCORTISONE
  227. LEFLUNOMIDE [Concomitant]
     Active Substance: LEFLUNOMIDE
     Indication: Rheumatoid arthritis
     Route: 048
  228. LEFLUNOMIDE [Concomitant]
     Active Substance: LEFLUNOMIDE
     Route: 048
  229. LEFLUNOMIDE [Concomitant]
     Active Substance: LEFLUNOMIDE
  230. SIMPONI [Concomitant]
     Active Substance: GOLIMUMAB
     Indication: Rheumatoid arthritis
     Route: 058
  231. SIMPONI [Concomitant]
     Active Substance: GOLIMUMAB
     Route: 058
  232. SIMPONI [Concomitant]
     Active Substance: GOLIMUMAB
     Route: 058
  233. SIMPONI [Concomitant]
     Active Substance: GOLIMUMAB
     Route: 058
  234. SIMPONI [Concomitant]
     Active Substance: GOLIMUMAB
     Route: 058
  235. SIMPONI [Concomitant]
     Active Substance: GOLIMUMAB
  236. STELARA [Concomitant]
     Active Substance: USTEKINUMAB
     Indication: Product used for unknown indication
     Route: 058
  237. SULFASALAZINE [Concomitant]
     Active Substance: SULFASALAZINE
     Indication: Rheumatoid arthritis
     Route: 048
  238. SULFASALAZINE [Concomitant]
     Active Substance: SULFASALAZINE
     Indication: Psoriatic arthropathy
     Route: 048
  239. SULFASALAZINE [Concomitant]
     Active Substance: SULFASALAZINE
  240. SULFASALAZINE [Concomitant]
     Active Substance: SULFASALAZINE
     Route: 048
  241. SULFASALAZINE [Concomitant]
     Active Substance: SULFASALAZINE
  242. SULFASALAZINE [Concomitant]
     Active Substance: SULFASALAZINE
     Route: 058
  243. SULFASALAZINE [Concomitant]
     Active Substance: SULFASALAZINE
     Route: 048
  244. SULFASALAZINE [Concomitant]
     Active Substance: SULFASALAZINE
  245. SULFASALAZINE [Concomitant]
     Active Substance: SULFASALAZINE
  246. SULFASALAZINE [Concomitant]
     Active Substance: SULFASALAZINE
     Route: 048
  247. SULFASALAZINE [Concomitant]
     Active Substance: SULFASALAZINE
     Route: 048
  248. SULFASALAZINE [Concomitant]
     Active Substance: SULFASALAZINE
     Route: 048
  249. TOCILIZUMAB [Concomitant]
     Active Substance: TOCILIZUMAB
     Indication: Rheumatoid arthritis
  250. TOCILIZUMAB [Concomitant]
     Active Substance: TOCILIZUMAB
     Route: 058
  251. TOFACITINIB [Concomitant]
     Active Substance: TOFACITINIB
     Indication: Product used for unknown indication
  252. TOFACITINIB CITRATE [Concomitant]
     Active Substance: TOFACITINIB CITRATE
     Indication: Product used for unknown indication
  253. TOFACITINIB CITRATE [Concomitant]
     Active Substance: TOFACITINIB CITRATE
  254. TOFACITINIB CITRATE [Concomitant]
     Active Substance: TOFACITINIB CITRATE
  255. TOFACITINIB CITRATE [Concomitant]
     Active Substance: TOFACITINIB CITRATE
  256. VITAMIN B12 [Concomitant]
     Active Substance: CYANOCOBALAMIN
     Indication: Product used for unknown indication
  257. VITAMIN C [Concomitant]
     Active Substance: ASCORBIC ACID
     Indication: Product used for unknown indication
  258. VITAMIN D3 [Concomitant]
     Active Substance: CHOLECALCIFEROL
     Indication: Product used for unknown indication
  259. DICLOFENAC [Concomitant]
     Active Substance: DICLOFENAC
     Indication: Product used for unknown indication
  260. DICLOFENAC [Concomitant]
     Active Substance: DICLOFENAC
  261. DICLOFENAC [Concomitant]
     Active Substance: DICLOFENAC
  262. XELJANZ [Concomitant]
     Active Substance: TOFACITINIB CITRATE
     Indication: Rheumatoid arthritis
  263. XELJANZ [Concomitant]
     Active Substance: TOFACITINIB CITRATE
  264. XELJANZ [Concomitant]
     Active Substance: TOFACITINIB CITRATE
     Route: 048
  265. XELJANZ [Concomitant]
     Active Substance: TOFACITINIB CITRATE
  266. XELJANZ [Concomitant]
     Active Substance: TOFACITINIB CITRATE
  267. CALCIUM GLUCONATE;CALCIUM SACCHARATE [Concomitant]
     Indication: Product used for unknown indication
  268. CELECOXIB [Concomitant]
     Active Substance: CELECOXIB
     Indication: Product used for unknown indication
  269. CELECOXIB [Concomitant]
     Active Substance: CELECOXIB
  270. CELECOXIB [Concomitant]
     Active Substance: CELECOXIB
  271. CELECOXIB [Concomitant]
     Active Substance: CELECOXIB
  272. CELECOXIB [Concomitant]
     Active Substance: CELECOXIB
  273. CELECOXIB [Concomitant]
     Active Substance: CELECOXIB
  274. CELECOXIB [Concomitant]
     Active Substance: CELECOXIB
  275. CELECOXIB [Concomitant]
     Active Substance: CELECOXIB
  276. CELECOXIB [Concomitant]
     Active Substance: CELECOXIB
  277. CELECOXIB [Concomitant]
     Active Substance: CELECOXIB
  278. CELECOXIB [Concomitant]
     Active Substance: CELECOXIB
  279. CELECOXIB [Concomitant]
     Active Substance: CELECOXIB
  280. CELECOXIB [Concomitant]
     Active Substance: CELECOXIB

REACTIONS (46)
  - Hand deformity [Not Recovered/Not Resolved]
  - Helicobacter infection [Not Recovered/Not Resolved]
  - Hepatic enzyme increased [Not Recovered/Not Resolved]
  - Hypersensitivity [Not Recovered/Not Resolved]
  - Infusion related reaction [Not Recovered/Not Resolved]
  - Injury [Not Recovered/Not Resolved]
  - Joint swelling [Not Recovered/Not Resolved]
  - Liver injury [Not Recovered/Not Resolved]
  - Mobility decreased [Not Recovered/Not Resolved]
  - Musculoskeletal stiffness [Not Recovered/Not Resolved]
  - Nausea [Not Recovered/Not Resolved]
  - Oedema [Not Recovered/Not Resolved]
  - Off label use [Unknown]
  - Pain [Not Recovered/Not Resolved]
  - Pemphigus [Not Recovered/Not Resolved]
  - Pericarditis [Not Recovered/Not Resolved]
  - Psoriatic arthropathy [Not Recovered/Not Resolved]
  - Rash [Not Recovered/Not Resolved]
  - Rheumatoid arthritis [Not Recovered/Not Resolved]
  - Rheumatoid factor positive [Not Recovered/Not Resolved]
  - Swelling [Not Recovered/Not Resolved]
  - Synovitis [Not Recovered/Not Resolved]
  - Systemic lupus erythematosus [Not Recovered/Not Resolved]
  - Vomiting [Not Recovered/Not Resolved]
  - Wheezing [Not Recovered/Not Resolved]
  - Hospitalisation [Unknown]
  - Adverse event [Unknown]
  - Contusion [Unknown]
  - Drug ineffective [Unknown]
  - Drug intolerance [Unknown]
  - Dyspepsia [Unknown]
  - Gait disturbance [Unknown]
  - Migraine [Unknown]
  - Pain in extremity [Unknown]
  - Peripheral swelling [Unknown]
  - Pneumonia [Unknown]
  - Prescribed overdose [Unknown]
  - Prescribed underdose [Unknown]
  - Pulmonary fibrosis [Unknown]
  - Therapeutic product effect decreased [Unknown]
  - Therapy non-responder [Unknown]
  - Treatment failure [Unknown]
  - Ulcer haemorrhage [Unknown]
  - Urticaria [Unknown]
  - Product use issue [Unknown]
  - Therapeutic response decreased [Unknown]
